FAERS Safety Report 24663863 (Version 1)
Quarter: 2024Q4

REPORT INFORMATION
  Report Type: Spontaneous
  Country: GB (occurrence: GB)
  Receive Date: 20241126
  Receipt Date: 20241126
  Transmission Date: 20250114
  Serious: Yes (Disabling)
  Sender: AUROBINDO
  Company Number: GB-MHRA-WEBRADR-202411151049187230-RGTJS

PATIENT
  Age: 70 Year
  Sex: Female
  Weight: 83 kg

DRUGS (1)
  1. CLARITHROMYCIN [Suspect]
     Active Substance: CLARITHROMYCIN
     Indication: Inflammation
     Dosage: 1 MILLIGRAM
     Route: 048
     Dates: start: 20241113, end: 20241115

REACTIONS (1)
  - Sleep terror [Not Recovered/Not Resolved]

NARRATIVE: CASE EVENT DATE: 20241113
